FAERS Safety Report 22632003 (Version 2)
Quarter: 2023Q2

REPORT INFORMATION
  Report Type: Report from Study
  Country: US (occurrence: US)
  Receive Date: 20230623
  Receipt Date: 20230623
  Transmission Date: 20230722
  Serious: No
  Sender: FDA-Public Use
  Company Number: US-002147023-NVSC2023US139785

PATIENT
  Sex: Female

DRUGS (9)
  1. BETAMETHASONE DIPROPIONATE [Suspect]
     Active Substance: BETAMETHASONE DIPROPIONATE
     Indication: Hidradenitis
     Dosage: UNK
     Route: 065
  2. MINOCYCLINE [Suspect]
     Active Substance: MINOCYCLINE HYDROCHLORIDE
     Indication: Hidradenitis
     Dosage: UNK
     Route: 065
  3. DOXYCYCLINE [Suspect]
     Active Substance: DOXYCYCLINE
     Indication: Hidradenitis
     Dosage: UNK
     Route: 065
  4. MINOXIDIL [Suspect]
     Active Substance: MINOXIDIL
     Indication: Hidradenitis
     Dosage: UNK
     Route: 065
  5. VITAMIN C [Suspect]
     Active Substance: ASCORBIC ACID
     Indication: Hidradenitis
     Dosage: UNK
     Route: 065
  6. VITAMINS [Suspect]
     Active Substance: VITAMINS
     Indication: Hidradenitis
     Dosage: UNK
     Route: 065
  7. PRAVASTATIN [Suspect]
     Active Substance: PRAVASTATIN
     Indication: Hidradenitis
     Dosage: UNK
     Route: 065
  8. LISINOPRIL [Suspect]
     Active Substance: LISINOPRIL
     Indication: Hidradenitis
     Dosage: UNK
     Route: 065
  9. SPIRONOLACTONE [Suspect]
     Active Substance: SPIRONOLACTONE
     Indication: Hidradenitis
     Dosage: UNK
     Route: 065

REACTIONS (5)
  - Dry skin [Unknown]
  - Pruritus [Unknown]
  - Alopecia [Unknown]
  - Seborrhoeic keratosis [Unknown]
  - Drug ineffective [Unknown]
